FAERS Safety Report 4964397-6 (Version None)
Quarter: 2006Q1

REPORT INFORMATION
  Report Type: 
  Country: None (occurrence: None)
  Receive Date: 20060331
  Receipt Date: 20060320
  Transmission Date: 20060701
  Serious: Yes (Other)
  Sender: FDA-Public Use
  Company Number: 13623

PATIENT
  Age: 65 Year
  Sex: Male

DRUGS (2)
  1. METHOTREXATE [Suspect]
     Indication: CENTRAL NERVOUS SYSTEM LYMPHOMA
     Dosage: 3760 MG DAILY OTHER
     Route: 050
     Dates: end: 20060224
  2. CORTICOSTEROID [Concomitant]

REACTIONS (5)
  - BLOOD CREATININE INCREASED [None]
  - CHEMOTHERAPEUTIC DRUG LEVEL INCREASED [None]
  - DIALYSIS [None]
  - PLATELET COUNT DECREASED [None]
  - WHITE BLOOD CELL COUNT DECREASED [None]
